FAERS Safety Report 9288170 (Version 1)
Quarter: 2013Q2

REPORT INFORMATION
  Report Type: Spontaneous
  Country: US (occurrence: None)
  Receive Date: 20130513
  Receipt Date: 20130513
  Transmission Date: 20140414
  Serious: Yes (Other)
  Sender: FDA-Public Use
  Company Number: None

PATIENT
  Age: 41 Year
  Sex: Female
  Weight: 52.4 kg

DRUGS (5)
  1. STRIBILD [Concomitant]
     Route: 048
     Dates: start: 20130214, end: 20130508
  2. OMEPRAZOLE [Concomitant]
  3. ONDANSETRON [Concomitant]
  4. DRONABINOOL [Concomitant]
  5. GABAPENTIN [Concomitant]

REACTIONS (2)
  - Neuralgia [None]
  - Blood creatine phosphokinase increased [None]
